FAERS Safety Report 4277127-0 (Version None)
Quarter: 2004Q1

REPORT INFORMATION
  Report Type: 
  Country: None (occurrence: None)
  Receive Date: 20040120
  Receipt Date: 19980831
  Transmission Date: 20041129
  Serious: Yes (Death)
  Sender: FDA-Public Use
  Company Number: 7169

PATIENT
  Age: 64 Year
  Sex: Female

DRUGS (5)
  1. METHOTREXATE [Suspect]
     Indication: ANAEMIA
     Dosage: 10 MG WEEKLY
  2. CHLORAMBUCIL [Concomitant]
  3. PREDNISOLONE [Concomitant]
  4. CYCLOPHOSPHAMIDE [Concomitant]
  5. CYCLOSPORINE [Concomitant]

REACTIONS (3)
  - ARTHRITIS BACTERIAL [None]
  - NEUTROPENIA [None]
  - STAPHYLOCOCCAL INFECTION [None]
